FAERS Safety Report 11888864 (Version 1)
Quarter: 2016Q1

REPORT INFORMATION
  Report Type: Spontaneous
  Country: VE (occurrence: None)
  Receive Date: 20160104
  Receipt Date: 20160104
  Transmission Date: 20160526
  Serious: No
  Sender: FDA-Public Use
  Company Number: None

PATIENT
  Age: 11 Month
  Sex: Female
  Weight: 52 kg

DRUGS (3)
  1. ACIDO [Concomitant]
  2. TOPIRAMATE 100 MG MONTE VERDE SA ARGENTINA [Suspect]
     Active Substance: TOPIRAMATE
     Indication: EPILEPSY
     Dosage: TAKEN BY MOUTH
  3. VALPROICO [Concomitant]

REACTIONS (1)
  - Speech disorder [None]

NARRATIVE: CASE EVENT DATE: 20151231
